FAERS Safety Report 18746310 (Version 1)
Quarter: 2021Q1

REPORT INFORMATION
  Report Type: Spontaneous
  Country: US (occurrence: US)
  Receive Date: 20210114
  Receipt Date: 20210114
  Transmission Date: 20210419
  Serious: Yes (Death)
  Sender: FDA-Public Use
  Company Number: None

PATIENT
  Sex: Female

DRUGS (18)
  1. ASPIRIN. [Concomitant]
     Active Substance: ASPIRIN
  2. CALCIUM [Concomitant]
     Active Substance: CALCIUM
  3. ALLOPURINOL. [Concomitant]
     Active Substance: ALLOPURINOL
  4. OMEGA 3 KRILL [Concomitant]
  5. VITAMIN D3 [Concomitant]
     Active Substance: CHOLECALCIFEROL
  6. ESTRADIOL. [Concomitant]
     Active Substance: ESTRADIOL
  7. ATORVASTATIN [Concomitant]
     Active Substance: ATORVASTATIN
  8. GAMMAGARD [Concomitant]
     Active Substance: HUMAN IMMUNOGLOBULIN G
  9. PROBIOTIC [Concomitant]
     Active Substance: PROBIOTICS NOS
  10. SUPER ENZYME [Concomitant]
  11. DONEPEZIL. [Concomitant]
     Active Substance: DONEPEZIL
  12. IRON [Concomitant]
     Active Substance: IRON
  13. MONTELUKAST [Concomitant]
     Active Substance: MONTELUKAST SODIUM
  14. GILENYA [Suspect]
     Active Substance: FINGOLIMOD HYDROCHLORIDE
     Indication: MULTIPLE SCLEROSIS
     Route: 048
     Dates: start: 20180425
  15. MAGNESIUM [Concomitant]
     Active Substance: MAGNESIUM
  16. MUCINEX [Concomitant]
     Active Substance: GUAIFENESIN
  17. NAMENDA [Concomitant]
     Active Substance: MEMANTINE HYDROCHLORIDE
  18. LIOTHYRONINE [Concomitant]
     Active Substance: LIOTHYRONINE

REACTIONS (1)
  - Death [None]
